FAERS Safety Report 7971879-1 (Version None)
Quarter: 2011Q4

REPORT INFORMATION
  Report Type: 
  Country: None (occurrence: None)
  Receive Date: 20111212
  Receipt Date: 20111204
  Transmission Date: 20120403
  Serious: Yes (Hospitalization)
  Sender: FDA-Public Use
  Company Number: US-BAYER-2011-116887

PATIENT
  Age: 47 Year
  Sex: Female
  Weight: 90.703 kg

DRUGS (2)
  1. ASPIRIN [Suspect]
     Indication: HEADACHE
     Dosage: 2 DF, ONCE, BOTTLE COUNT 50S
     Route: 048
     Dates: start: 20111204
  2. TAMOXIFEN [Concomitant]

REACTIONS (4)
  - OROPHARYNGEAL PAIN [None]
  - DRY MOUTH [None]
  - PHARYNGEAL OEDEMA [None]
  - HYPOAESTHESIA ORAL [None]
